FAERS Safety Report 7473305-8 (Version None)
Quarter: 2011Q2

REPORT INFORMATION
  Report Type: 
  Country: None (occurrence: None)
  Receive Date: 20110511
  Receipt Date: 20110223
  Transmission Date: 20111010
  Serious: Yes (Hospitalization, Other)
  Sender: FDA-Public Use
  Company Number: DE-BAYER-201047581GPV

PATIENT
  Age: 73 Year
  Sex: Male

DRUGS (11)
  1. TANNOLACT [UREA-SODIUM CRESOLSULFONIC ACID] [Concomitant]
     Indication: PALMAR-PLANTAR ERYTHRODYSAESTHESIA SYNDROME
     Dosage: ON DEMAND
     Dates: start: 20101021
  2. ASPIRIN [Concomitant]
     Indication: HYPERTENSION
     Dosage: 200 MG, UNK
     Dates: start: 20091004
  3. LACTULOSE [Concomitant]
     Indication: CONSTIPATION PROPHYLAXIS
     Dosage: ON DEMAND
     Dates: start: 20090304, end: 20101025
  4. SPIRONOLACTONE [Concomitant]
     Indication: OEDEMA PERIPHERAL
     Dosage: 150 MG, UNK
     Dates: start: 20101129
  5. LOPERAMIDE [Concomitant]
     Indication: DIARRHOEA
     Dosage: 1-2 CAPSULES
     Dates: start: 20101018
  6. NEXAVAR [Suspect]
     Indication: HEPATIC NEOPLASM MALIGNANT
     Dosage: 150 MG, QD
     Route: 048
     Dates: start: 20101018, end: 20101025
  7. SPIRO COMP [Concomitant]
     Indication: CHRONIC OBSTRUCTIVE PULMONARY DISEASE
     Dosage: 6.2 MG, UNK
     Dates: start: 20090304
  8. TORSEMIDE [Concomitant]
     Indication: HYPERTENSION
     Dosage: 10 MG, UNK
     Dates: start: 20090304
  9. LACTULOSE [Concomitant]
     Dosage: 2-3 SPOONS
     Dates: start: 20101025
  10. NEXAVAR [Suspect]
     Indication: HEPATIC NEOPLASM MALIGNANT
     Dosage: 400 MG, BID
     Route: 048
     Dates: start: 20101018, end: 20101025
  11. METOCLOPRAMID [Concomitant]
     Indication: PROPHYLAXIS OF NAUSEA AND VOMITING
     Dosage: 25 DROPS
     Dates: start: 20101018

REACTIONS (4)
  - FATIGUE [None]
  - ASTHENIA [None]
  - HEPATIC ENCEPHALOPATHY [None]
  - VERTIGO [None]
